FAERS Safety Report 23491865 (Version 5)
Quarter: 2024Q2

REPORT INFORMATION
  Report Type: Report from Study
  Country: MX (occurrence: MX)
  Receive Date: 20240207
  Receipt Date: 20240514
  Transmission Date: 20240716
  Serious: Yes (Hospitalization, Other)
  Sender: FDA-Public Use
  Company Number: MX-002147023-NVSC2024MX026298

PATIENT
  Age: 54 Year
  Sex: Female

DRUGS (6)
  1. TASIGNA [Suspect]
     Active Substance: NILOTINIB
     Indication: Chronic myeloid leukaemia
     Dosage: 2 DOSAGE FORM, QD (ONCE DAILY) ( SHE TAKES 2 IN THE MORNING)
     Route: 048
  2. TASIGNA [Suspect]
     Active Substance: NILOTINIB
     Indication: Leukaemia
     Dosage: 4 DOSAGE FORM, QD (ONCE DAILY) ( SHE TAKES 2 IN THE MORNING)
     Route: 048
     Dates: start: 2015
  3. IMATINIB MESYLATE [Suspect]
     Active Substance: IMATINIB MESYLATE
     Indication: Leukaemia
     Dosage: UNK
     Route: 048
     Dates: start: 2015, end: 2015
  4. LOSARTAN [Concomitant]
     Active Substance: LOSARTAN
     Indication: Hypertension
     Dosage: 1 DOSAGE FORM, QD
     Route: 048
  5. INSULIN GLARGINE [Concomitant]
     Active Substance: INSULIN GLARGINE
     Indication: Diabetes mellitus
     Dosage: 25 IU, QD
     Route: 048
  6. TRAMADOL [Concomitant]
     Active Substance: TRAMADOL\TRAMADOL HYDROCHLORIDE
     Indication: Pain
     Dosage: 1 DOSAGE FORM, PRN (A DAY WHEN REQUIRED)
     Route: 048

REACTIONS (13)
  - Peripheral vein thrombosis [Unknown]
  - Cardiac disorder [Not Recovered/Not Resolved]
  - Chronic myeloid leukaemia recurrent [Unknown]
  - Abdominal discomfort [Unknown]
  - Arterial disorder [Unknown]
  - Pain in extremity [Unknown]
  - Heart rate decreased [Not Recovered/Not Resolved]
  - Cardiovascular insufficiency [Recovered/Resolved]
  - Embolism [Unknown]
  - Ill-defined disorder [Unknown]
  - Malaise [Unknown]
  - Syncope [Recovered/Resolved]
  - Gastrointestinal disorder [Recovered/Resolved]

NARRATIVE: CASE EVENT DATE: 20230501
